FAERS Safety Report 22254668 (Version 1)
Quarter: 2023Q2

REPORT INFORMATION
  Report Type: Spontaneous
  Country: US (occurrence: None)
  Receive Date: 20230424
  Receipt Date: 20230424
  Transmission Date: 20230722
  Serious: Yes (Hospitalization)
  Sender: FDA-Public Use
  Company Number: None

PATIENT
  Age: 25 Year
  Sex: Female

DRUGS (1)
  1. PULMOZYME [Suspect]
     Active Substance: DORNASE ALFA
     Dosage: FREQUENCY : DAILY;?
     Route: 055
     Dates: start: 2015

REACTIONS (3)
  - Hepatic failure [None]
  - Liver transplant [None]
  - Pyrexia [None]

NARRATIVE: CASE EVENT DATE: 20230201
